FAERS Safety Report 11706013 (Version 3)
Quarter: 2015Q4

REPORT INFORMATION
  Report Type: Spontaneous
  Country: JP (occurrence: JP)
  Receive Date: 20151106
  Receipt Date: 20151224
  Transmission Date: 20160304
  Serious: Yes (Death, Life-Threatening, Hospitalization, Other)
  Sender: FDA-Public Use
  Company Number: JP-GILEAD-2015-0179012

PATIENT
  Age: 72 Year
  Sex: Female
  Weight: 48 kg

DRUGS (3)
  1. MENATETRENONE [Concomitant]
     Active Substance: MENATETRENONE
     Indication: OSTEOPOROSIS
     Dosage: 3 DF, QD
     Route: 048
  2. HARVONI [Suspect]
     Active Substance: LEDIPASVIR\SOFOSBUVIR
     Indication: CHRONIC HEPATITIS C
     Dosage: 1 DF, QD
     Route: 048
     Dates: start: 20151008, end: 20151024
  3. POLAPREZINC [Concomitant]
     Active Substance: POLAPREZINC
     Indication: GASTRIC ULCER
     Dosage: 2 DF, QD
     Route: 048

REACTIONS (12)
  - Enterocolitis bacterial [Fatal]
  - Intestinal obstruction [Unknown]
  - Hepatic necrosis [Unknown]
  - Acute kidney injury [Fatal]
  - Cerebellar haemorrhage [Not Recovered/Not Resolved]
  - Acidosis [Unknown]
  - Shock [Recovered/Resolved]
  - Acute hepatic failure [Fatal]
  - Blood creatine phosphokinase increased [Unknown]
  - Peritonitis bacterial [Fatal]
  - Atelectasis [Unknown]
  - Hypoglycaemia [Unknown]

NARRATIVE: CASE EVENT DATE: 20151024
